FAERS Safety Report 10846844 (Version 3)
Quarter: 2015Q3

REPORT INFORMATION
  Report Type: Spontaneous
  Country: US (occurrence: US)
  Receive Date: 20150220
  Receipt Date: 20150827
  Transmission Date: 20151125
  Serious: Yes (Disabling, Other)
  Sender: FDA-Public Use
  Company Number: US-TEVA-542371USA

PATIENT
  Sex: Female

DRUGS (1)
  1. PARAGARD T 380A [Suspect]
     Active Substance: COPPER
     Indication: CONTRACEPTION
     Route: 015
     Dates: start: 201308

REACTIONS (8)
  - Medical device complication [Not Recovered/Not Resolved]
  - Complication of device insertion [Unknown]
  - Infection [Unknown]
  - Abscess [Unknown]
  - Device dislocation [Unknown]
  - Embedded device [Unknown]
  - Uterine perforation [Unknown]
  - Pain [Unknown]

NARRATIVE: CASE EVENT DATE: 20150116
